FAERS Safety Report 23534780 (Version 2)
Quarter: 2024Q1

REPORT INFORMATION
  Report Type: Spontaneous
  Country: US (occurrence: US)
  Receive Date: 20240217
  Receipt Date: 20240307
  Transmission Date: 20240410
  Serious: Yes (Life-Threatening, Hospitalization, Other)
  Sender: FDA-Public Use
  Company Number: US-MACLEODS PHARMACEUTICALS US LTD-MAC2024045885

PATIENT

DRUGS (12)
  1. LIDOCAINE [Suspect]
     Active Substance: LIDOCAINE
     Indication: Anaesthetic premedication
     Dosage: 20 MILLILITER (LIDOCAINE 2%), XYLOCAINE, FRESNIUS KABI, NDC:
     Route: 058
  2. LIDOCAINE [Suspect]
     Active Substance: LIDOCAINE
     Dosage: 70 MILLILITER, SINGLE (LIDOCAINE 2%), XYLOCAINE, FRESNIUS KABI, NDC:
     Route: 058
  3. FENTANYL [Concomitant]
     Active Substance: FENTANYL\FENTANYL CITRATE
     Indication: Premedication
     Dosage: 50 MICROGRAM
     Route: 042
  4. MIDAZOLAM [Concomitant]
     Active Substance: MIDAZOLAM
     Indication: Premedication
     Dosage: 2 MILLIGRAM
     Route: 042
  5. METOPROLOL [Concomitant]
     Active Substance: METOPROLOL
     Indication: Hypertension
     Dosage: 50 MILLIGRAM, PRN (DAILY)
     Route: 065
  6. METOPROLOL [Concomitant]
     Active Substance: METOPROLOL
     Dosage: 2.5 MILLIGRAM
     Route: 042
  7. BUPROPION [Concomitant]
     Active Substance: BUPROPION
     Indication: Product used for unknown indication
     Dosage: 150 MILLIGRAM, QD
     Route: 065
  8. RIZATRIPTAN BENZOATE [Concomitant]
     Active Substance: RIZATRIPTAN BENZOATE
     Indication: Headache
     Dosage: 1 DOSAGE FORM, PRN
     Route: 065
  9. GABAPENTIN [Concomitant]
     Active Substance: GABAPENTIN
     Indication: Neuralgia
     Dosage: 1 DOSAGE FORM, PRN (ONE CAPSULE TWICE DAILY FOR NERVE PAIN PRN))
     Route: 065
  10. CHOLECALCIFEROL [Concomitant]
     Active Substance: CHOLECALCIFEROL
     Indication: Product used for unknown indication
     Dosage: 50 MICROGRAM, QD
     Route: 065
  11. FAMOTIDINE [Concomitant]
     Active Substance: FAMOTIDINE
     Indication: Gastrooesophageal reflux disease
     Dosage: 40 MILLIGRAM, BID
     Route: 065
  12. DIVALPROEX SODIUM [Concomitant]
     Active Substance: DIVALPROEX SODIUM
     Indication: Product used for unknown indication
     Dosage: 750 MILLIGRAM, QD
     Route: 065

REACTIONS (8)
  - Local anaesthetic systemic toxicity [Recovered/Resolved]
  - Sinus tachycardia [Recovered/Resolved]
  - Dysarthria [Recovered/Resolved]
  - Facial paralysis [Recovered/Resolved]
  - Hemihypoaesthesia [Recovered/Resolved]
  - Hemiparesis [Recovered/Resolved]
  - Tremor [Recovered/Resolved]
  - Overdose [Recovered/Resolved]
